FAERS Safety Report 8459644-2 (Version None)
Quarter: 2012Q2

REPORT INFORMATION
  Report Type: 
  Country: None (occurrence: None)
  Receive Date: 20120622
  Receipt Date: 20120614
  Transmission Date: 20120825
  Serious: Yes (Hospitalization)
  Sender: FDA-Public Use
  Company Number: TW-GLAXOSMITHKLINE-B0808665A

PATIENT
  Age: 65 Year
  Sex: Male
  Weight: 79 kg

DRUGS (1)
  1. AVANDAMET [Suspect]
     Indication: DIABETES MELLITUS
     Dosage: 500MG TWICE PER DAY
     Route: 065
     Dates: start: 20080210, end: 20080222

REACTIONS (3)
  - ASTHMA [None]
  - OEDEMA PERIPHERAL [None]
  - NAUSEA [None]
